FAERS Safety Report 22742578 (Version 3)
Quarter: 2025Q1

REPORT INFORMATION
  Report Type: Spontaneous
  Country: US (occurrence: US)
  Receive Date: 20230724
  Receipt Date: 20250210
  Transmission Date: 20250409
  Serious: No
  Sender: BIOGEN
  Company Number: US-BIOGEN-2023BI01216323

PATIENT
  Sex: Female

DRUGS (2)
  1. TYSABRI [Suspect]
     Active Substance: NATALIZUMAB
     Indication: Multiple sclerosis
     Route: 050
     Dates: start: 20190822
  2. TYSABRI [Suspect]
     Active Substance: NATALIZUMAB
     Route: 050
     Dates: start: 20130613, end: 20180315

REACTIONS (6)
  - Product dose omission issue [Unknown]
  - Inappropriate schedule of product administration [Unknown]
  - Spinal stenosis [Unknown]
  - Memory impairment [Unknown]
  - Feeling abnormal [Unknown]
  - Malaise [Unknown]
